FAERS Safety Report 6198265-1 (Version None)
Quarter: 2009Q2

REPORT INFORMATION
  Report Type: 
  Country: None (occurrence: None)
  Receive Date: 20090521
  Receipt Date: 20090511
  Transmission Date: 20091009
  Serious: Yes (Other)
  Sender: FDA-Public Use
  Company Number: BR-JNJFOC-20090503001

PATIENT
  Sex: Male
  Weight: 83 kg

DRUGS (2)
  1. TYLENOL (CAPLET) [Suspect]
     Route: 048
  2. TYLENOL (CAPLET) [Suspect]
     Indication: PAIN
     Route: 048

REACTIONS (3)
  - PRODUCT COUNTERFEIT [None]
  - RASH PAPULAR [None]
  - RASH PRURITIC [None]
